FAERS Safety Report 23200191 (Version 1)
Quarter: 2023Q4

REPORT INFORMATION
  Report Type: Report from Study
  Country: GB (occurrence: GB)
  Receive Date: 20231118
  Receipt Date: 20231118
  Transmission Date: 20240110
  Serious: Yes (Other)
  Sender: FDA-Public Use
  Company Number: GB-ABBVIE-5491777

PATIENT
  Age: 40 Year
  Sex: Female

DRUGS (1)
  1. BOTOX [Suspect]
     Active Substance: ONABOTULINUMTOXINA
     Indication: Product used for unknown indication
     Dosage: TIME INTERVAL: AS NECESSARY
     Route: 065

REACTIONS (5)
  - Poisoning [Unknown]
  - Patient dissatisfaction with treatment [Unknown]
  - Reduced facial expression [Unknown]
  - Depressed mood [Unknown]
  - Emotional distress [Unknown]
